FAERS Safety Report 23943172 (Version 1)
Quarter: 2024Q2

REPORT INFORMATION
  Report Type: Spontaneous
  Country: CN (occurrence: CN)
  Receive Date: 20240605
  Receipt Date: 20240605
  Transmission Date: 20240715
  Serious: Yes (Hospitalization, Other)
  Sender: FDA-Public Use
  Company Number: CN-002147023-NVSC2024CN118000

PATIENT
  Age: 1 Year
  Sex: Female

DRUGS (2)
  1. TRAMETINIB [Suspect]
     Active Substance: TRAMETINIB
     Indication: Symptomatic treatment
     Dosage: 0.500 MG, QD
     Route: 048
     Dates: start: 20240214, end: 20240509
  2. TRAMETINIB [Suspect]
     Active Substance: TRAMETINIB
     Dosage: 0.25 MG, QD
     Route: 048
     Dates: start: 20240514, end: 20240529

REACTIONS (4)
  - Myocardial necrosis marker increased [Recovering/Resolving]
  - Respiratory rate increased [Not Recovered/Not Resolved]
  - Heart rate increased [Not Recovered/Not Resolved]
  - Blood pressure decreased [Recovering/Resolving]

NARRATIVE: CASE EVENT DATE: 20240214
